FAERS Safety Report 7543078-9 (Version None)
Quarter: 2011Q2

REPORT INFORMATION
  Report Type: 
  Country: None (occurrence: None)
  Receive Date: 20110613
  Receipt Date: 20110602
  Transmission Date: 20111010
  Serious: Yes (Other)
  Sender: FDA-Public Use
  Company Number: PHHY2011BR48863

PATIENT
  Sex: Male

DRUGS (3)
  1. RITALIN LA [Suspect]
     Indication: ATTENTION DEFICIT/HYPERACTIVITY DISORDER
     Dosage: 1 DF, DAY
     Route: 048
     Dates: end: 20110503
  2. RITALIN [Suspect]
     Indication: ATTENTION DEFICIT/HYPERACTIVITY DISORDER
     Dosage: 2 DF, DAILY
     Route: 048
  3. RITALIN LA [Suspect]
     Dosage: 1 DF, DAY
     Route: 048
     Dates: start: 20110527

REACTIONS (4)
  - DECREASED APPETITE [None]
  - MIGRAINE [None]
  - RETCHING [None]
  - INSOMNIA [None]
